FAERS Safety Report 24797985 (Version 1)
Quarter: 2025Q1

REPORT INFORMATION
  Report Type: Spontaneous
  Country: CA (occurrence: CA)
  Receive Date: 20250102
  Receipt Date: 20250102
  Transmission Date: 20250409
  Serious: Yes (Other)
  Sender: TEVA
  Company Number: CA-TEVA-VS-3279536

PATIENT
  Age: 44 Year
  Sex: Male
  Weight: 101 kg

DRUGS (1)
  1. OLMESARTAN [Suspect]
     Active Substance: OLMESARTAN
     Indication: Hypertension
     Route: 048

REACTIONS (2)
  - Skin disorder [Recovered/Resolved]
  - Sleep disorder [Recovered/Resolved]
